FAERS Safety Report 9206175 (Version 1)
Quarter: 2013Q2

REPORT INFORMATION
  Report Type: Spontaneous
  Country: US (occurrence: US)
  Receive Date: 20130403
  Receipt Date: 20130403
  Transmission Date: 20140414
  Serious: No
  Sender: FDA-Public Use
  Company Number: US-PFIZER INC-2013102344

PATIENT
  Age: 71 Year
  Sex: Female
  Weight: 74.83 kg

DRUGS (19)
  1. PROTONIX [Suspect]
     Indication: GASTROOESOPHAGEAL REFLUX DISEASE
     Dosage: 40MG DAILY
     Dates: start: 2010
  2. FISH OIL [Concomitant]
     Indication: EYE DISORDER
     Dosage: 4 G, UNK
  3. VITAMIN D [Concomitant]
     Dosage: 5000 IU, 1X/DAY
  4. VITAMIN E [Concomitant]
     Dosage: 1000 IU, 4X/DAY
  5. VITAMIN B12 COMPLEX [Concomitant]
     Dosage: UNK, 1X/DAY
  6. AMITRIPTYLINE [Concomitant]
     Indication: DEPRESSION
     Dosage: 50MG DAILY
  7. AMITRIPTYLINE [Concomitant]
     Indication: INSOMNIA
  8. ALBUTEROL [Concomitant]
     Indication: ASTHMA
     Dosage: 2 PUFF 4 TIMES A DAY
  9. METOPROLOL [Concomitant]
     Indication: BLOOD PRESSURE ABNORMAL
     Dosage: 50 MG, 2X/DAY
  10. LORAZEPAM [Concomitant]
     Indication: ANXIETY
     Dosage: 1 MG, 3X/DAY
  11. ASPIRIN [Concomitant]
     Indication: ANTICOAGULANT THERAPY
     Dosage: 81MG DAILY
  12. CYMBALTA [Concomitant]
     Indication: DEPRESSION
     Dosage: 60MG DAILY
  13. CYMBALTA [Concomitant]
     Indication: NEUROPATHY PERIPHERAL
  14. TRIAMTERENE HYDROCHLOROTHIAZIDE [Concomitant]
     Indication: BLOOD PRESSURE ABNORMAL
     Dosage: 25/37.5MG, DAILY
  15. TRIAMTERENE HYDROCHLOROTHIAZIDE [Concomitant]
     Indication: DIURETIC THERAPY
  16. LEVOTHYROXINE [Concomitant]
     Indication: HYPOTHYROIDISM
     Dosage: 50MCG DAILY
  17. LOTRISONE [Concomitant]
     Indication: RADIATION SKIN INJURY
     Dosage: UNK, 2X/DAY
  18. LOTRISONE [Concomitant]
     Indication: FUNGAL INFECTION
  19. PREMARIN [Concomitant]
     Indication: SKIN DISORDER
     Dosage: UNK, 1X/DAY

REACTIONS (1)
  - Blood cholesterol increased [Unknown]
